FAERS Safety Report 12828436 (Version 5)
Quarter: 2017Q1

REPORT INFORMATION
  Report Type: Spontaneous
  Country: CL (occurrence: CL)
  Receive Date: 20161007
  Receipt Date: 20170222
  Transmission Date: 20170428
  Serious: Yes (Hospitalization, Other)
  Sender: FDA-Public Use
  Company Number: CL-BIOMARINAP-CL-2016-111365

PATIENT
  Sex: Female
  Weight: 19.8 kg

DRUGS (2)
  1. ALDURAZYME [Suspect]
     Active Substance: LARONIDASE
     Indication: MUCOPOLYSACCHARIDOSIS I
     Dosage: UNK, QW
     Route: 041
     Dates: start: 2010, end: 20160916
  2. ALDURAZYME [Suspect]
     Active Substance: LARONIDASE
     Dosage: UNK
     Route: 041
     Dates: start: 20160928

REACTIONS (5)
  - Epilepsy [Unknown]
  - Dyskinesia [Recovered/Resolved]
  - Respiratory symptom [Recovered/Resolved]
  - Rectal haemorrhage [Recovered/Resolved]
  - Nasopharyngitis [Recovered/Resolved]
